FAERS Safety Report 9792873 (Version 1)
Quarter: 2014Q1

REPORT INFORMATION
  Report Type: Spontaneous
  Country: US (occurrence: US)
  Receive Date: 20140102
  Receipt Date: 20140102
  Transmission Date: 20141002
  Serious: No
  Sender: FDA-Public Use
  Company Number: US-SA-2013SA117561

PATIENT
  Age: 57 Year
  Sex: Male
  Weight: 79.3 kg

DRUGS (12)
  1. AUBAGIO [Suspect]
     Indication: MULTIPLE SCLEROSIS
     Route: 048
  2. METHADONE [Concomitant]
     Dosage: STRENGTH: 5 MG
  3. AMLODIPINE [Concomitant]
     Dosage: STRENGTH: 10 MG
  4. INDOMETHACIN [Concomitant]
     Dosage: STRENGTH: 50 MG
  5. MAGNESIUM [Concomitant]
     Dosage: STRENGTH: 200 MG
  6. ASA [Concomitant]
     Dosage: LOW DOSE TABLET?STRENGTH: 81 MG ENTERIC COATED TABLET
  7. DEXILANT [Concomitant]
     Dosage: STRENGTH: 60 MG DELAY RELEASE CAPSULE
  8. ATORVASTATIN [Concomitant]
     Dosage: STRENGTH: 10 MG
  9. PRAMIPEXOLE [Concomitant]
     Dosage: STRENGTH: 0.5 MG
  10. MULTIVITAMINS [Concomitant]
  11. ESCITALOPRAM [Concomitant]
     Dosage: STRENGTH: 20 MG
  12. VITAMIN D3 [Concomitant]
     Dosage: STRENGTH: 1000 UNIT

REACTIONS (2)
  - Hypersensitivity [Unknown]
  - Hypoaesthesia [Unknown]
